FAERS Safety Report 6192496-2 (Version None)
Quarter: 2009Q2

REPORT INFORMATION
  Report Type: 
  Country: None (occurrence: None)
  Receive Date: 20090518
  Receipt Date: 20090511
  Transmission Date: 20091009
  Serious: Yes (Life-Threatening, Other)
  Sender: FDA-Public Use
  Company Number: GB-WYE-G03461509

PATIENT
  Sex: Female
  Weight: 89.6 kg

DRUGS (5)
  1. PREMARIN [Suspect]
     Indication: MENOPAUSAL SYMPTOMS
     Dosage: 0.625MG (FREQUENCY UNSPECIFIED)
     Route: 048
     Dates: start: 20090114, end: 20090125
  2. QUETIAPINE FUMARATE [Concomitant]
     Indication: AGITATION
     Dosage: 25MG (FREQUENCY UNSPECIFIED)
     Route: 048
     Dates: start: 20061207
  3. NITRAZEPAM [Concomitant]
     Route: 048
     Dates: start: 20081004
  4. DOVOBET [Concomitant]
     Dosage: UNKNOWN
  5. MIRTAZAPINE [Concomitant]
     Indication: DEPRESSION
     Route: 048
     Dates: start: 20080810

REACTIONS (2)
  - DISSOCIATIVE AMNESIA [None]
  - MOOD SWINGS [None]
